FAERS Safety Report 4307876-7 (Version None)
Quarter: 2004Q1

REPORT INFORMATION
  Report Type: 
  Country: None (occurrence: None)
  Receive Date: 20040226
  Receipt Date: 20030122
  Transmission Date: 20041129
  Serious: Yes (Other)
  Sender: FDA-Public Use
  Company Number: 2002139924US

PATIENT
  Age: 44 Year
  Sex: Male
  Weight: 70.3 kg

DRUGS (3)
  1. CELEBREX [Suspect]
     Indication: PAIN
     Dosage: 200 MG, BID; ORAL
     Route: 048
     Dates: start: 20021107, end: 20021218
  2. DORYX [Concomitant]
  3. ... [Concomitant]

REACTIONS (6)
  - ABDOMINAL PAIN [None]
  - DECREASED APPETITE [None]
  - FLATULENCE [None]
  - HAEMATOCHEZIA [None]
  - NERVOUSNESS [None]
  - WEIGHT DECREASED [None]
